FAERS Safety Report 14498563 (Version 1)
Quarter: 2018Q1

REPORT INFORMATION
  Report Type: Report from Study
  Country: US (occurrence: US)
  Receive Date: 20180207
  Receipt Date: 20180207
  Transmission Date: 20180509
  Serious: Yes (Death)
  Sender: FDA-Public Use
  Company Number: US-SAOL THERAPEUTICS-2018SAO00116

PATIENT
  Age: 39 Year

DRUGS (7)
  1. FENTANYL. [Suspect]
     Active Substance: FENTANYL
     Dosage: 109.83 ?G, \DAY
     Route: 037
     Dates: start: 20170104
  2. FENTANYL. [Suspect]
     Active Substance: FENTANYL
     Dosage: 609.14 ?G, \DAY MAX
  3. BUPIVACAINE. [Suspect]
     Active Substance: BUPIVACAINE
     Dosage: 5.492 MG, \DAY
     Route: 037
     Dates: start: 20170104
  4. CLONIDINE. [Suspect]
     Active Substance: CLONIDINE
     Dosage: 109.83 ?G, \DAY
     Route: 037
     Dates: start: 20170104
  5. COMPOUNDED BACLOFEN [Suspect]
     Active Substance: BACLOFEN
     Route: 037
  6. BUPIVACAINE. [Suspect]
     Active Substance: BUPIVACAINE
     Dosage: 30.457 MG, \DAY
  7. CLONIDINE. [Suspect]
     Active Substance: CLONIDINE
     Dosage: 609.14 ?G, \DAY

REACTIONS (3)
  - Device malfunction [Not Recovered/Not Resolved]
  - Implant site pain [Recovered/Resolved]
  - Myeloid leukaemia [Fatal]

NARRATIVE: CASE EVENT DATE: 20170209
